FAERS Safety Report 5168225-8 (Version None)
Quarter: 2006Q4

REPORT INFORMATION
  Report Type: 
  Country: None (occurrence: None)
  Receive Date: 20061208
  Receipt Date: 20061207
  Transmission Date: 20070319
  Serious: Yes (Other)
  Sender: FDA-Public Use
  Company Number: BPC-XL-06-120

PATIENT
  Age: 60 Year
  Sex: Female

DRUGS (9)
  1. WELLBUTRIN XL [Suspect]
     Indication: DRUG USE FOR UNKNOWN INDICATION
     Dosage: 150MG PER DAY
     Route: 048
     Dates: start: 20061101, end: 20061115
  2. IMIQUIMOD [Concomitant]
  3. FLUOXETINE [Concomitant]
     Dosage: 20MG THREE TIMES PER WEEK
  4. LOSARTAN POTASSIUM [Concomitant]
     Dosage: 50MG TWICE PER DAY
  5. NALTREXONE HYDROCHLORIDE [Concomitant]
     Dosage: .5MG PER DAY
  6. CELECOXIB [Concomitant]
     Dosage: 200MG PER DAY
  7. LANSOPRAZOLE [Concomitant]
     Dosage: 30MG PER DAY
  8. FLUTICASONE PROPIONATE [Concomitant]
  9. OXAZEPAM [Concomitant]
     Dosage: 15MG PER DAY

REACTIONS (4)
  - GLOSSODYNIA [None]
  - PHARYNGOLARYNGEAL PAIN [None]
  - RASH [None]
  - URTICARIA [None]
